FAERS Safety Report 8007426-8 (Version None)
Quarter: 2011Q4

REPORT INFORMATION
  Report Type: 
  Country: None (occurrence: None)
  Receive Date: 20111227
  Receipt Date: 20111216
  Transmission Date: 20120403
  Serious: Yes (Hospitalization)
  Sender: FDA-Public Use
  Company Number: US-BAYER-2011-052760

PATIENT
  Age: 23 Year
  Sex: Female
  Weight: 61.224 kg

DRUGS (12)
  1. PEPCID [Concomitant]
     Indication: GASTROOESOPHAGEAL REFLUX DISEASE
     Dosage: 40 MG, QD
     Route: 048
     Dates: start: 20071028, end: 20080529
  2. DOXYCYCLINE HYCLATE [Concomitant]
     Indication: ANTIBIOTIC THERAPY
     Dosage: 100 MG, BID
     Route: 048
     Dates: start: 20080529
  3. PROMETHAZINE [Concomitant]
     Indication: ANTIEMETIC SUPPORTIVE CARE
  4. DEXTROMETHORPHAN HYDROBROMIDE [Concomitant]
     Indication: ANTITUSSIVE THERAPY
     Dosage: 6.25-15 MG/ML; 2-3 TEASPOONFULS AT BEDTIME
     Route: 048
     Dates: start: 20080529
  5. PROMETHAZINE [Concomitant]
     Indication: ANTITUSSIVE THERAPY
     Dosage: 6.25-15 MG/ML; 2-3 TEASPOONFULS AT BEDTIME
     Route: 048
     Dates: start: 20080529
  6. KEFLEX [Concomitant]
  7. TESSALON [Concomitant]
     Indication: ANTITUSSIVE THERAPY
     Dosage: 200 MG, TID
     Route: 048
     Dates: start: 20080529
  8. TORADOL [Concomitant]
  9. MOTRIN [Concomitant]
     Dosage: 800 MG, TID
  10. YAZ [Suspect]
     Indication: PREMENSTRUAL SYNDROME
     Dosage: UNK
     Route: 048
     Dates: start: 20050101, end: 20080101
  11. DEXTROMETHORPHAN HYDROBROMIDE [Concomitant]
     Indication: ANTIEMETIC SUPPORTIVE CARE
  12. MEDROL [Concomitant]

REACTIONS (3)
  - PAIN [None]
  - INJURY [None]
  - PULMONARY EMBOLISM [None]
